FAERS Safety Report 9489987 (Version 2)
Quarter: 2013Q3

REPORT INFORMATION
  Report Type: Report from Study
  Country: JP (occurrence: JP)
  Receive Date: 20130829
  Receipt Date: 20130906
  Transmission Date: 20140515
  Serious: Yes (Other)
  Sender: FDA-Public Use
  Company Number: JP-GILEAD-2013-0082051

PATIENT
  Age: 24 Year
  Sex: Male

DRUGS (2)
  1. EMTRICITABINE/TENOFOVIR DISOPROXIL FUMARATE [Suspect]
     Indication: HIV INFECTION
     Dosage: 1 DF, QD
     Dates: start: 20080805, end: 20120402
  2. KALETRA [Concomitant]
     Indication: HIV INFECTION
     Dosage: UNK
     Dates: start: 20090609

REACTIONS (1)
  - Osteoporosis [Not Recovered/Not Resolved]
